FAERS Safety Report 10359179 (Version 1)
Quarter: 2014Q3

REPORT INFORMATION
  Report Type: Spontaneous
  Country: DE (occurrence: DE)
  Receive Date: 20140804
  Receipt Date: 20140804
  Transmission Date: 20150326
  Serious: Yes (Death)
  Sender: FDA-Public Use
  Company Number: PHHY2014DE094474

PATIENT
  Age: 19 Year

DRUGS (8)
  1. CYTARABIN [Concomitant]
     Active Substance: CYTARABINE
     Indication: LEUKAEMIA RECURRENT
     Dosage: 40 MG
     Route: 037
  2. DEXAMETHASONE. [Concomitant]
     Active Substance: DEXAMETHASONE
     Indication: LEUKAEMIA RECURRENT
     Dosage: 4 MG
     Route: 037
  3. NILOTINIB [Suspect]
     Active Substance: NILOTINIB
     Indication: ACUTE LYMPHOCYTIC LEUKAEMIA
     Dosage: 400 MG, BID
  4. NILOTINIB [Suspect]
     Active Substance: NILOTINIB
     Indication: OFF LABEL USE
  5. METHOTREXATE [Concomitant]
     Active Substance: METHOTREXATE
     Indication: LEUKAEMIA RECURRENT
     Dosage: 15 MG
     Route: 037
  6. DEXAMETHASONE. [Concomitant]
     Active Substance: DEXAMETHASONE
     Dosage: 4 MG, BID [D+52 TO D+83]
  7. RITUXIMAB [Concomitant]
     Active Substance: RITUXIMAB
     Indication: LEUKAEMIA RECURRENT
     Dosage: 375 MG/M2 [D+30, D+38, D+53]
     Route: 042
  8. VINCRISTINE [Concomitant]
     Active Substance: VINCRISTINE
     Indication: LEUKAEMIA RECURRENT
     Dosage: 2 MG, [D+29,D+56, D+78]
     Route: 042

REACTIONS (1)
  - Malignant neoplasm progression [Fatal]
